FAERS Safety Report 21962337 (Version 1)
Quarter: 2023Q1

REPORT INFORMATION
  Report Type: Spontaneous
  Country: FR (occurrence: FR)
  Receive Date: 20230207
  Receipt Date: 20230207
  Transmission Date: 20230418
  Serious: Yes (Life-Threatening, Hospitalization)
  Sender: FDA-Public Use
  Company Number: None

PATIENT
  Age: 80 Year
  Sex: Female
  Weight: 65 kg

DRUGS (3)
  1. PROZAC [Suspect]
     Active Substance: FLUOXETINE HYDROCHLORIDE
     Indication: Depression
     Dosage: 40 MG, UNKNOWN
     Route: 048
     Dates: start: 20221219
  2. PIVMECILLINAM HYDROCHLORIDE [Interacting]
     Active Substance: PIVMECILLINAM HYDROCHLORIDE
     Indication: Urinary tract infection
     Dosage: POSOLOGIE INCONNUE
     Route: 048
     Dates: start: 20221219, end: 20221223
  3. XARELTO [Suspect]
     Active Substance: RIVAROXABAN
     Indication: Thrombosis
     Dosage: 0-0-1
     Route: 048
     Dates: start: 2021, end: 20230101

REACTIONS (1)
  - Haemorrhage intracranial [Not Recovered/Not Resolved]

NARRATIVE: CASE EVENT DATE: 20210101
